FAERS Safety Report 12964555 (Version 1)
Quarter: 2016Q4

REPORT INFORMATION
  Report Type: Spontaneous
  Country: GB (occurrence: GB)
  Receive Date: 20161122
  Receipt Date: 20161122
  Transmission Date: 20170207
  Serious: Yes (Other)
  Sender: FDA-Public Use
  Company Number: GB-PFIZER INC-2016535073

PATIENT
  Age: 81 Year
  Sex: Female
  Weight: 52 kg

DRUGS (14)
  1. OLOPATADINE [Concomitant]
     Active Substance: OLOPATADINE
     Dosage: 3 TIMES DAILY
     Route: 050
     Dates: start: 20160921, end: 20161019
  2. DERMOL [Concomitant]
     Active Substance: BENZALKONIUM CHLORIDE\CHLORHEXIDINE HYDROCHLORIDE\ISOPROPYL MYRISTATE\PARAFFIN
     Dosage: USE AS DIRECTED
     Dates: start: 20160223
  3. DIAZEPAM. [Concomitant]
     Active Substance: DIAZEPAM
     Dosage: 1 DF 1 OR 2 DAILY
     Dates: start: 20161013
  4. FEXOFENADINE [Concomitant]
     Active Substance: FEXOFENADINE\FEXOFENADINE HYDROCHLORIDE
     Dosage: 1 OR 2 DAILY
     Dates: start: 20160223
  5. QUININE [Concomitant]
     Active Substance: QUININE
     Dosage: 1 DF, 1X/DAY, NIGHT
     Dates: start: 20160929
  6. DOXAZOSIN MESILATE [Suspect]
     Active Substance: DOXAZOSIN MESYLATE
     Dosage: UNK
     Dates: start: 20160727
  7. BENDROFLUMETHIAZIDE [Concomitant]
     Active Substance: BENDROFLUMETHIAZIDE
     Dosage: 1 DF, 1X/DAY, MORNING
     Dates: start: 20150708
  8. CLOTRIMAZOLE. [Concomitant]
     Active Substance: CLOTRIMAZOLE
     Dosage: APPLY 2-3 TIMES/DAY
     Dates: start: 20161013, end: 20161014
  9. MONTELUKAST [Concomitant]
     Active Substance: MONTELUKAST SODIUM
     Dosage: 1 DF, 1X/DAY, NIGHT
     Dates: start: 20150415, end: 20160915
  10. CITALOPRAM [Concomitant]
     Active Substance: CITALOPRAM HYDROBROMIDE
     Dosage: 1 DF, 1X/DAY
     Dates: start: 20160412
  11. LERCANIDIPINE HYDROCHLORIDE [Concomitant]
     Active Substance: LERCANIDIPINE HYDROCHLORIDE
     Dosage: 1 DF, 1X/DAY
     Dates: start: 20150610, end: 20160915
  12. DEPO-MEDRONE [Concomitant]
     Active Substance: METHYLPREDNISOLONE
     Dosage: USE AS DIRECTED
     Dates: start: 20131114, end: 20160920
  13. LOPRAZOLAM [Concomitant]
     Active Substance: LOPRAZOLAM
     Dosage: 0.5 DF, 1X/DAY, NIGHT
     Dates: start: 20141218, end: 20160915
  14. TRIMETHOPRIM. [Concomitant]
     Active Substance: TRIMETHOPRIM
     Dosage: 1 DF, 2X/DAY
     Dates: start: 20160825, end: 20160826

REACTIONS (2)
  - Abdominal distension [Unknown]
  - Joint swelling [Unknown]

NARRATIVE: CASE EVENT DATE: 20161107
